FAERS Safety Report 9262487 (Version 1)
Quarter: 2013Q2

REPORT INFORMATION
  Report Type: Spontaneous
  Country: BD (occurrence: None)
  Receive Date: 20130425
  Receipt Date: 20130425
  Transmission Date: 20140414
  Serious: No
  Sender: FDA-Public Use
  Company Number: 2013P1004928

PATIENT
  Sex: Male

DRUGS (1)
  1. CEFUROXIME [Suspect]
     Indication: URINARY TRACT INFECTION
     Dosage: 500MG;BID;IU;PO
     Route: 048

REACTIONS (6)
  - Maternal drugs affecting foetus [None]
  - Drug eruption [None]
  - Diarrhoea [None]
  - Restlessness [None]
  - Blister [None]
  - Drug administration error [None]
